FAERS Safety Report 8932192 (Version 4)
Quarter: 2013Q3

REPORT INFORMATION
  Report Type: Spontaneous
  Country: FR (occurrence: FR)
  Receive Date: 20121128
  Receipt Date: 20130814
  Transmission Date: 20140515
  Serious: Yes (Hospitalization)
  Sender: FDA-Public Use
  Company Number: FR-JNJFOC-20121107729

PATIENT
  Age: 17 Year
  Sex: Male

DRUGS (28)
  1. RISPERDAL [Suspect]
     Indication: SCHIZOPHRENIA
     Route: 048
     Dates: start: 20120907, end: 20120908
  2. RISPERDAL [Suspect]
     Indication: SCHIZOPHRENIA
     Route: 048
     Dates: start: 20120908, end: 20120910
  3. RISPERDAL [Suspect]
     Indication: SCHIZOPHRENIA
     Route: 048
     Dates: start: 20120910, end: 20120914
  4. RISPERDAL [Suspect]
     Indication: SCHIZOPHRENIA
     Route: 048
     Dates: start: 20120914, end: 20121002
  5. RISPERDAL [Suspect]
     Indication: SCHIZOPHRENIA
     Route: 048
     Dates: start: 20120907, end: 20120908
  6. RISPERDAL [Suspect]
     Indication: SCHIZOPHRENIA
     Route: 048
     Dates: start: 20120910, end: 20120914
  7. RISPERDAL [Suspect]
     Indication: SCHIZOPHRENIA
     Route: 048
     Dates: start: 20120914, end: 20121002
  8. RISPERDAL [Suspect]
     Indication: SCHIZOPHRENIA
     Route: 048
     Dates: start: 20120908, end: 20120910
  9. RISPERDAL [Suspect]
     Indication: SCHIZOPHRENIA
     Route: 048
     Dates: start: 20120908, end: 20120910
  10. RISPERDAL [Suspect]
     Indication: SCHIZOPHRENIA
     Route: 048
     Dates: start: 20120907, end: 20120908
  11. RISPERDAL [Suspect]
     Indication: SCHIZOPHRENIA
     Route: 048
     Dates: start: 20120910, end: 20120914
  12. RISPERDAL [Suspect]
     Indication: SCHIZOPHRENIA
     Route: 048
     Dates: start: 20120914, end: 20121002
  13. RISPERDAL [Suspect]
     Indication: SCHIZOPHRENIA
     Route: 048
     Dates: start: 20120907, end: 20120908
  14. RISPERDAL [Suspect]
     Indication: SCHIZOPHRENIA
     Route: 048
     Dates: start: 20120914, end: 20121002
  15. RISPERDAL [Suspect]
     Indication: SCHIZOPHRENIA
     Route: 048
     Dates: start: 20120910, end: 20120914
  16. RISPERDAL [Suspect]
     Indication: SCHIZOPHRENIA
     Route: 048
     Dates: start: 20120908, end: 20120910
  17. TERCIAN [Suspect]
     Indication: PSYCHOTIC DISORDER
     Dosage: TAKEN OCCASIONALLY IF NEEDED
     Route: 048
     Dates: end: 20121002
  18. SOLIAN [Suspect]
     Indication: PSYCHOTIC DISORDER
     Route: 048
     Dates: start: 20121008, end: 20121009
  19. SEROPLEX [Suspect]
     Indication: PSYCHOTIC DISORDER
     Dosage: REINTRODUCTION ON AN UNKNOWN DATE
     Route: 048
     Dates: start: 20121213
  20. SEROPLEX [Suspect]
     Indication: PSYCHOTIC DISORDER
     Route: 048
     Dates: start: 20120924, end: 20121015
  21. SEROPLEX [Suspect]
     Indication: PSYCHOTIC DISORDER
     Route: 048
     Dates: start: 20120911, end: 20120924
  22. SEROPLEX [Suspect]
     Indication: PSYCHOTIC DISORDER
     Route: 048
     Dates: start: 20120924, end: 20121015
  23. SEROPLEX [Suspect]
     Indication: PSYCHOTIC DISORDER
     Route: 048
     Dates: start: 20120911, end: 20120924
  24. SEROPLEX [Suspect]
     Indication: PSYCHOTIC DISORDER
     Dosage: REINTRODUCTION ON AN UNKNOWN DATE
     Route: 048
     Dates: start: 20121213
  25. SEROPLEX [Suspect]
     Indication: PSYCHOTIC DISORDER
     Route: 048
     Dates: start: 20120911, end: 20120924
  26. SEROPLEX [Suspect]
     Indication: PSYCHOTIC DISORDER
     Route: 048
     Dates: start: 20120924, end: 20121015
  27. SEROPLEX [Suspect]
     Indication: PSYCHOTIC DISORDER
     Dosage: REINTRODUCTION ON AN UNKNOWN DATE
     Route: 048
     Dates: start: 20121213
  28. RIVOTRIL [Suspect]
     Indication: PRODUCT USED FOR UNKNOWN INDICATION
     Route: 065
     Dates: start: 20120913

REACTIONS (2)
  - Hepatitis cholestatic [Recovered/Resolved]
  - Hepatitis [Recovered/Resolved]
